FAERS Safety Report 15333002 (Version 1)
Quarter: 2018Q3

REPORT INFORMATION
  Report Type: Spontaneous
  Country: CN (occurrence: CN)
  Receive Date: 20180830
  Receipt Date: 20180830
  Transmission Date: 20181010
  Serious: Yes (Hospitalization, Other)
  Sender: FDA-Public Use
  Company Number: CN-ROCHE-2177330

PATIENT
  Age: 41 Year
  Sex: Female
  Weight: 48 kg

DRUGS (8)
  1. SODIUM CHLORIDE. [Concomitant]
     Active Substance: SODIUM CHLORIDE
     Dosage: FOR 48 HOURS
     Route: 065
     Dates: start: 20180701
  2. SODIUM CHLORIDE. [Concomitant]
     Active Substance: SODIUM CHLORIDE
     Dosage: FAST DROPS
     Route: 065
     Dates: start: 20180701
  3. AVASTIN [Suspect]
     Active Substance: BEVACIZUMAB
     Indication: COLON CANCER
     Route: 041
     Dates: start: 20180701, end: 20180701
  4. GLUCOSE [Concomitant]
     Active Substance: DEXTROSE
     Route: 065
     Dates: start: 20180701
  5. SODIUM CHLORIDE. [Concomitant]
     Active Substance: SODIUM CHLORIDE
     Dosage: ONCE PER DAY
     Route: 065
  6. IRINOTECAN HYDROCHLORIDE. [Suspect]
     Active Substance: IRINOTECAN HYDROCHLORIDE
     Indication: COLON CANCER
     Route: 041
     Dates: start: 20180701, end: 20180701
  7. FLUOROURACIL. [Suspect]
     Active Substance: FLUOROURACIL
     Indication: COLON CANCER
     Route: 041
     Dates: start: 20180701, end: 20180701
  8. FLUOROURACIL. [Suspect]
     Active Substance: FLUOROURACIL
     Dosage: PUMP INJECTION
     Route: 041
     Dates: start: 20180701, end: 20180703

REACTIONS (2)
  - Bone marrow failure [Recovered/Resolved]
  - Neutrophil count decreased [Recovered/Resolved]

NARRATIVE: CASE EVENT DATE: 20180704
